FAERS Safety Report 8438678-8 (Version None)
Quarter: 2012Q2

REPORT INFORMATION
  Report Type: 
  Country: None (occurrence: None)
  Receive Date: 20120611
  Receipt Date: 20120611
  Transmission Date: 20120825
  Serious: No
  Sender: FDA-Public Use
  Company Number: None

PATIENT
  Sex: Female
  Weight: 58.9676 kg

DRUGS (1)
  1. AZELASTINE HCL [Suspect]
     Indication: EYE ALLERGY
     Dosage: 1 DROP 2 X'S PER DAY
     Dates: start: 20120609, end: 20120609

REACTIONS (2)
  - FEELING ABNORMAL [None]
  - EYE DISORDER [None]
